FAERS Safety Report 22173447 (Version 1)
Quarter: 2023Q2

REPORT INFORMATION
  Report Type: Spontaneous
  Country: US (occurrence: US)
  Receive Date: 20230404
  Receipt Date: 20230404
  Transmission Date: 20230722
  Serious: Yes (Hospitalization)
  Sender: FDA-Public Use
  Company Number: US-TAIHO-2023-000143

PATIENT
  Sex: Female
  Weight: 138.32 kg

DRUGS (4)
  1. LONSURF [Suspect]
     Active Substance: TIPIRACIL HYDROCHLORIDE\TRIFLURIDINE
     Indication: Colon cancer
     Dosage: CURRENT CYCLE UNKNOWN?DAILY DOSE: 60 MILLIGRAM(S)
     Route: 048
     Dates: start: 20220428, end: 20220607
  2. STIVARGA [Suspect]
     Active Substance: REGORAFENIB
     Indication: Colon cancer
     Dosage: FILM-COATED TABLET
     Route: 050
     Dates: start: 20220207, end: 20220411
  3. LEVOTHYROXINE [Concomitant]
     Active Substance: LEVOTHYROXINE
     Indication: Product used for unknown indication
  4. TRAMADOL HCL [Concomitant]
     Active Substance: TRAMADOL HYDROCHLORIDE
     Indication: Product used for unknown indication

REACTIONS (6)
  - Hepatic pain [Unknown]
  - Intestinal haemorrhage [Unknown]
  - White blood cell count decreased [Unknown]
  - Pain in extremity [Recovering/Resolving]
  - Palmar-plantar erythrodysaesthesia syndrome [Unknown]
  - Sinusitis [Unknown]
